FAERS Safety Report 6793774-6 (Version None)
Quarter: 2010Q2

REPORT INFORMATION
  Report Type: 
  Country: None (occurrence: None)
  Receive Date: 20100624
  Receipt Date: 20090522
  Transmission Date: 20101027
  Serious: No
  Sender: FDA-Public Use
  Company Number: US-PFIZER INC-2008157586

PATIENT
  Sex: Male
  Weight: 80.7 kg

DRUGS (10)
  1. RELPAX [Suspect]
     Indication: MIGRAINE
     Dosage: 40 MG, AS NEEDED
     Dates: start: 20081212, end: 20081216
  2. NEXIUM [Concomitant]
  3. PEPCID [Concomitant]
  4. ZOCOR [Concomitant]
  5. PROSCAR [Concomitant]
  6. UROXATRAL [Concomitant]
  7. TOPROL-XL [Concomitant]
  8. MAGNESIUM [Concomitant]
  9. RIBOFLAVIN [Concomitant]
  10. CENTRUM SILVER [Concomitant]

REACTIONS (6)
  - BACK PAIN [None]
  - DRUG INEFFECTIVE [None]
  - DRY EYE [None]
  - EYE IRRITATION [None]
  - EYE PRURITUS [None]
  - VISION BLURRED [None]
